FAERS Safety Report 15238070 (Version 3)
Quarter: 2018Q4

REPORT INFORMATION
  Report Type: Spontaneous
  Country: IT (occurrence: IT)
  Receive Date: 20180803
  Receipt Date: 20181018
  Transmission Date: 20190204
  Serious: Yes (Other)
  Sender: FDA-Public Use
  Company Number: IT-PFIZER INC-2018310751

PATIENT
  Age: 58 Year
  Sex: Female

DRUGS (2)
  1. IBRANCE [Suspect]
     Active Substance: PALBOCICLIB
     Indication: BREAST CANCER
     Dosage: 125 MG (1 DF), 1X/DAY
     Route: 048
     Dates: start: 20171018, end: 20180530
  2. FASLODEX [Concomitant]
     Active Substance: FULVESTRANT
     Indication: BREAST CANCER
     Dosage: 250 MG (1 DF), UNK
     Dates: start: 20171018, end: 20180530

REACTIONS (4)
  - Acute leukaemia [Unknown]
  - Anaemia [Unknown]
  - Second primary malignancy [Unknown]
  - Thrombocytopenia [Unknown]

NARRATIVE: CASE EVENT DATE: 20180606
